FAERS Safety Report 4452310-X (Version None)
Quarter: 2004Q3

REPORT INFORMATION
  Report Type: 
  Country: None (occurrence: None)
  Receive Date: 20040917
  Receipt Date: 20040910
  Transmission Date: 20050211
  Serious: Yes (Other)
  Sender: FDA-Public Use
  Company Number: AU-ROCHE-380334

PATIENT
  Age: 17 Year
  Sex: Male
  Weight: 65 kg

DRUGS (1)
  1. ROACCUTANE [Suspect]
     Indication: ACNE VARIOLIFORMIS
     Route: 048
     Dates: start: 20040714, end: 20040719

REACTIONS (4)
  - ANXIETY [None]
  - ARTHRALGIA [None]
  - DEPRESSION [None]
  - MYALGIA [None]
